FAERS Safety Report 17945355 (Version 2)
Quarter: 2020Q2

REPORT INFORMATION
  Report Type: Spontaneous
  Country: US (occurrence: US)
  Receive Date: 20200626
  Receipt Date: 20200630
  Transmission Date: 20200714
  Serious: No
  Sender: FDA-Public Use
  Company Number: US-JNJFOC-20200631331

PATIENT
  Sex: Male

DRUGS (1)
  1. IMODIUM A-D [Suspect]
     Active Substance: LOPERAMIDE HYDROCHLORIDE
     Indication: PRODUCT USED FOR UNKNOWN INDICATION
     Dosage: USED PRODUCT FOR YEARS
     Route: 065

REACTIONS (3)
  - Wrong technique in product usage process [Unknown]
  - Product packaging issue [Unknown]
  - Product package associated injury [Unknown]
